FAERS Safety Report 22062504 (Version 2)
Quarter: 2023Q1

REPORT INFORMATION
  Report Type: Spontaneous
  Country: US (occurrence: None)
  Receive Date: 20230305
  Receipt Date: 20230330
  Transmission Date: 20230418
  Serious: No
  Sender: FDA-Public Use
  Company Number: 2023A033828

PATIENT
  Age: 75 Year
  Sex: Female
  Weight: 55.3 kg

DRUGS (1)
  1. TAGRISSO [Suspect]
     Active Substance: OSIMERTINIB
     Indication: Lung neoplasm malignant
     Route: 048

REACTIONS (6)
  - Skin laceration [Unknown]
  - Onychomycosis [Unknown]
  - Pain in extremity [Unknown]
  - Hypoaesthesia [Unknown]
  - Tenderness [Unknown]
  - Nail injury [Recovered/Resolved]

NARRATIVE: CASE EVENT DATE: 20221001
